FAERS Safety Report 6526691-7 (Version None)
Quarter: 2009Q4

REPORT INFORMATION
  Report Type: 
  Country: None (occurrence: None)
  Receive Date: 20091230
  Receipt Date: 20091214
  Transmission Date: 20100525
  Serious: Yes (Other)
  Sender: FDA-Public Use
  Company Number: TRP_06637_2009

PATIENT
  Sex: Male
  Weight: 104.282 kg

DRUGS (4)
  1. RIBASPHERE [Suspect]
     Indication: HEPATITIS C
     Dosage: (1200 MG, DAILY ORAL)
     Route: 048
     Dates: start: 20091102
  2. PEGASYS [Suspect]
     Indication: HEPATITIS C
     Dosage: (180 PG 1X/WEEK SUBCUTANEOUS)
     Route: 058
     Dates: start: 20091102, end: 20091123
  3. AMERICAN INDIAN HERBS [Concomitant]
  4. LANTUS [Concomitant]

REACTIONS (5)
  - DIZZINESS [None]
  - DYSPNOEA [None]
  - FATIGUE [None]
  - INJECTION SITE ERYTHEMA [None]
  - INJECTION SITE HAEMATOMA [None]
